FAERS Safety Report 6650337-0 (Version None)
Quarter: 2010Q1

REPORT INFORMATION
  Report Type: 
  Country: None (occurrence: None)
  Receive Date: 20100325
  Receipt Date: 20100323
  Transmission Date: 20100710
  Serious: Yes (Death)
  Sender: FDA-Public Use
  Company Number: PHHY2010GB09255

PATIENT
  Sex: Male

DRUGS (6)
  1. CLOZARIL [Suspect]
     Indication: SCHIZOPHRENIA
     Dosage: 350 MG DAILY
     Route: 048
     Dates: start: 19990211
  2. COZAAR [Concomitant]
     Indication: HYPOKALAEMIA
     Dosage: 1 TABLET DAILY
     Route: 048
  3. BENDROFLUMETHIAZIDE [Concomitant]
     Indication: HYPERTENSION
     Dosage: 1 TABLET DAILY
     Route: 048
  4. RAMIPRIL [Concomitant]
     Dosage: 5 MG
     Route: 048
  5. SIMVASTATIN [Concomitant]
     Dosage: 40 MG
     Route: 048
  6. LANSOPRAZOLE [Concomitant]
     Indication: DYSPEPSIA
     Dosage: 30 MG
     Route: 048

REACTIONS (4)
  - ACUTE MYOCARDIAL INFARCTION [None]
  - CARDIAC ARREST [None]
  - CHEST PAIN [None]
  - CORONARY ARTERY THROMBOSIS [None]
